FAERS Safety Report 7892820-6 (Version None)
Quarter: 2011Q4

REPORT INFORMATION
  Report Type: 
  Country: None (occurrence: None)
  Receive Date: 20111104
  Receipt Date: 20111026
  Transmission Date: 20120403
  Serious: Yes (Other)
  Sender: FDA-Public Use
  Company Number: BR-AMGEN-BRASP2010008527

PATIENT
  Age: 68 Year
  Sex: Male
  Weight: 66 kg

DRUGS (18)
  1. ENBREL [Suspect]
     Indication: RHEUMATOID ARTHRITIS
     Dosage: 50 MG, QWK
     Route: 058
     Dates: start: 20100614
  2. CYCLOSPORINE [Suspect]
     Indication: RHEUMATOID ARTHRITIS
     Dosage: 5 TABLETS PER DAY
     Dates: start: 20100601, end: 20110801
  3. LAMIVUDINE (EPIVIR HBV) [Concomitant]
     Indication: LIVER DISORDER
  4. CALCIUM WITH VITAMIN D             /01233101/ [Concomitant]
     Indication: PRODUCT USED FOR UNKNOWN INDICATION
     Dosage: UNK
  5. ASPIRIN [Concomitant]
     Indication: THROMBOSIS PROPHYLAXIS
     Dosage: 100 MG, QD
     Dates: start: 20080101
  6. OMEPRAZOLE [Concomitant]
     Indication: GASTRIC DISORDER
  7. LEVOTHYROXINE SODIUM [Concomitant]
     Indication: HYPOTHYROIDISM
  8. ISOPHANE INSULIN [Concomitant]
     Indication: TYPE 2 DIABETES MELLITUS
     Dosage: 28 UNITS TWICE DAILY
     Dates: start: 19970101
  9. ISOPHANE INSULIN [Concomitant]
     Dosage: 28 UNITS TWICE DAILY
     Dates: start: 19990101
  10. NAPRIX [Concomitant]
     Indication: BLOOD PRESSURE
     Dosage: UNK
     Dates: start: 20100101
  11. LEVOTHYROXINE SODIUM [Concomitant]
     Indication: THYROID DISORDER
     Dosage: UNK
     Dates: start: 20070101
  12. NAPRIX D [Concomitant]
     Dosage: UNK
  13. ENALAPRIL MALEATE [Concomitant]
     Indication: BLOOD PRESSURE INCREASED
     Dosage: 10 MG, UNK
     Dates: start: 20070101
  14. LAMIVUDINE (EPIVIR HBV) [Concomitant]
     Indication: ANTIVIRAL PROPHYLAXIS
     Dosage: UNK
     Dates: start: 20100607
  15. SIMVASTATIN [Concomitant]
     Dosage: 20 MG, UNK
     Dates: start: 20080101
  16. CYCLOSPORINE [Suspect]
     Indication: MUSCULOSKELETAL PAIN
  17. ASPIRIN [Concomitant]
     Indication: THROMBOSIS PROPHYLAXIS
     Dosage: 100 MG, 1X/DAY
     Dates: start: 20080101
  18. SIMVASTATIN [Concomitant]
     Indication: BLOOD CHOLESTEROL
     Dosage: 40 MG, UNK
     Dates: start: 20070101

REACTIONS (8)
  - RED BLOOD CELL SEDIMENTATION RATE INCREASED [None]
  - BLOOD URIC ACID INCREASED [None]
  - BLOOD UREA INCREASED [None]
  - ANAEMIA [None]
  - BLOOD CREATININE INCREASED [None]
  - WEIGHT DECREASED [None]
  - NERVE COMPRESSION [None]
  - ALPHA 1 GLOBULIN ABNORMAL [None]
